FAERS Safety Report 13671507 (Version 1)
Quarter: 2017Q2

REPORT INFORMATION
  Report Type: Spontaneous
  Country: US (occurrence: US)
  Receive Date: 20170620
  Receipt Date: 20170620
  Transmission Date: 20170830
  Serious: No
  Sender: FDA-Public Use
  Company Number: US-ROCHE-1455488

PATIENT
  Age: 63 Year
  Sex: Female

DRUGS (1)
  1. XELODA [Suspect]
     Active Substance: CAPECITABINE
     Indication: PANCREATIC CARCINOMA
     Dosage: 2 TABLETS TWICE A DAY  MONDAY, WEDNESDAY, FRIDAY, SUNDAY
     Route: 048
     Dates: start: 20140212

REACTIONS (3)
  - Depression [Unknown]
  - Anxiety [Unknown]
  - Fatigue [Unknown]
